FAERS Safety Report 5321841-2 (Version None)
Quarter: 2007Q1

REPORT INFORMATION
  Report Type: 
  Country: None (occurrence: None)
  Receive Date: 20070215
  Receipt Date: 20061113
  Transmission Date: 20070707
  Serious: No
  Sender: FDA-Public Use
  Company Number: 200616556BWH

PATIENT
  Age: 80 Year
  Sex: Male

DRUGS (6)
  1. NEXAVAR [Suspect]
     Indication: RENAL CELL CARCINOMA STAGE UNSPECIFIED
     Dosage: SEE IMAGE
     Route: 048
     Dates: start: 20060101, end: 20060601
  2. NEXAVAR [Suspect]
     Indication: RENAL CELL CARCINOMA STAGE UNSPECIFIED
     Dosage: SEE IMAGE
     Route: 048
     Dates: start: 20060801, end: 20060901
  3. DIGOXIN [Concomitant]
  4. DILTIAZEM [Concomitant]
  5. LIPITOR [Concomitant]
  6. SANDOSTATIN [Concomitant]

REACTIONS (2)
  - BLISTER [None]
  - STOMATITIS [None]
